FAERS Safety Report 6152465-5 (Version None)
Quarter: 2009Q2

REPORT INFORMATION
  Report Type: 
  Country: None (occurrence: None)
  Receive Date: 20090413
  Receipt Date: 20090401
  Transmission Date: 20091009
  Serious: Yes (Other)
  Sender: FDA-Public Use
  Company Number: PHHY2009NO12920

PATIENT
  Sex: Female

DRUGS (2)
  1. SANDOSTATIN [Suspect]
     Indication: ACROMEGALY
     Dosage: 20 MG
     Dates: start: 20080601, end: 20090101
  2. SANDOSTATIN [Suspect]
     Dosage: 10 MG
     Dates: start: 20090101

REACTIONS (10)
  - ABDOMINAL PAIN UPPER [None]
  - ACROMEGALY [None]
  - ALOPECIA [None]
  - CONDITION AGGRAVATED [None]
  - DYSGEUSIA [None]
  - FLATULENCE [None]
  - HOT FLUSH [None]
  - PAIN IN EXTREMITY [None]
  - PERIPHERAL COLDNESS [None]
  - QUALITY OF LIFE DECREASED [None]
